FAERS Safety Report 9259270 (Version 1)
Quarter: 2013Q2

REPORT INFORMATION
  Report Type: Spontaneous
  Country: US (occurrence: US)
  Receive Date: 20130426
  Receipt Date: 20130426
  Transmission Date: 20140414
  Serious: No
  Sender: FDA-Public Use
  Company Number: US-009507513-1304USA013972

PATIENT
  Age: 51 Year
  Sex: Female

DRUGS (1)
  1. SINEMET [Suspect]
     Indication: PARKINSON^S DISEASE
     Dosage: 25/100 MG 3 TIMES DAILY (1.5 TBL 6 HOURS BEFORE AND 1 TBL 1 HOUR BEFORE

REACTIONS (1)
  - Mydriasis [Recovered/Resolved]
